FAERS Safety Report 23546513 (Version 4)
Quarter: 2024Q1

REPORT INFORMATION
  Report Type: Report from Study
  Country: DE (occurrence: DE)
  Receive Date: 20240221
  Receipt Date: 20240320
  Transmission Date: 20240410
  Serious: Yes (Hospitalization)
  Sender: FDA-Public Use
  Company Number: DE-ABBVIE-5626492

PATIENT
  Age: 75 Year
  Sex: Male

DRUGS (3)
  1. CARBIDOPA\LEVODOPA [Suspect]
     Active Substance: CARBIDOPA\LEVODOPA
     Indication: Parkinson^s disease
     Dosage: MD 7.0ML, CRD 4.5ML/H, CRN: 2.5ML/H, ED 2.5ML, DRUG END DATE-2023
     Route: 050
     Dates: start: 20230217
  2. CARBIDOPA\LEVODOPA [Suspect]
     Active Substance: CARBIDOPA\LEVODOPA
     Dosage: MD 0.1ML, CRD 4.5ML/H, CRN: 2.5ML/H, ED 2.5ML
     Route: 050
     Dates: start: 20230417
  3. CARBIDOPA\LEVODOPA [Suspect]
     Active Substance: CARBIDOPA\LEVODOPA
     Dosage: MD 7.0ML, CRD 4.5ML/H, CRN: 2.5ML/H, ED 2.5ML
     Route: 050

REACTIONS (13)
  - General physical health deterioration [Not Recovered/Not Resolved]
  - Dysphagia [Not Recovered/Not Resolved]
  - Malnutrition [Unknown]
  - Hospitalisation [Unknown]
  - Enteral nutrition [Recovered/Resolved]
  - Hallucination [Not Recovered/Not Resolved]
  - Incorrect dose administered [Not Recovered/Not Resolved]
  - Pneumonia [Recovered/Resolved]
  - Stoma site discharge [Not Recovered/Not Resolved]
  - Fall [Unknown]
  - Device occlusion [Not Recovered/Not Resolved]
  - Abdominal pain [Unknown]
  - Skin laceration [Unknown]

NARRATIVE: CASE EVENT DATE: 20240201
